FAERS Safety Report 15456593 (Version 1)
Quarter: 2018Q4

REPORT INFORMATION
  Report Type: Spontaneous
  Country: CN (occurrence: CN)
  Receive Date: 20181002
  Receipt Date: 20181002
  Transmission Date: 20190204
  Serious: Yes (Other)
  Sender: FDA-Public Use
  Company Number: CN-PFIZER INC-2018395201

PATIENT
  Age: 54 Year
  Sex: Female
  Weight: 50 kg

DRUGS (1)
  1. TAZOCIN [Suspect]
     Active Substance: PIPERACILLIN SODIUM\TAZOBACTAM SODIUM
     Indication: INFECTION
     Dosage: 4.5 G, 3X/DAY
     Route: 042
     Dates: start: 20180703, end: 20180710

REACTIONS (3)
  - Blood pressure increased [Recovering/Resolving]
  - Chills [Recovering/Resolving]
  - Transfusion reaction [Recovering/Resolving]

NARRATIVE: CASE EVENT DATE: 20180710
